FAERS Safety Report 6185775-6 (Version None)
Quarter: 2009Q2

REPORT INFORMATION
  Report Type: 
  Country: None (occurrence: None)
  Receive Date: 20090511
  Receipt Date: 20090430
  Transmission Date: 20091009
  Serious: Yes (Hospitalization)
  Sender: FDA-Public Use
  Company Number: US-KINGPHARMUSA00001-K200900519

PATIENT
  Age: 81 Year
  Sex: Female

DRUGS (9)
  1. ALTACE [Suspect]
     Indication: HYPERTENSIVE CARDIOMYOPATHY
     Dosage: 5 MG, QD
     Route: 048
     Dates: start: 20080801, end: 20090325
  2. NITRO-DUR [Suspect]
     Indication: CARDIAC FAILURE
     Dosage: 10 MG, QD
     Route: 062
     Dates: start: 20080801, end: 20090320
  3. SPIRIVA [Concomitant]
     Dosage: 1 U, UNK
  4. ALDACTONE [Concomitant]
     Route: 048
  5. SERETIDE                           /01420901/ [Concomitant]
     Dosage: 2 U, UNK
  6. LIMPIDEX [Concomitant]
     Dosage: UNK, UNK
  7. LASIX [Concomitant]
     Dosage: 50 MG, UNK
     Route: 048
  8. LEXOTAN [Concomitant]
  9. CARDIRENE [Concomitant]
     Route: 048

REACTIONS (5)
  - ATOPY [None]
  - BLOOD IMMUNOGLOBULIN E INCREASED [None]
  - EOSINOPHILIA [None]
  - PRURITUS [None]
  - WHITE BLOOD CELL COUNT INCREASED [None]
